FAERS Safety Report 11240370 (Version 4)
Quarter: 2015Q4

REPORT INFORMATION
  Report Type: Spontaneous
  Country: US (occurrence: US)
  Receive Date: 20150706
  Receipt Date: 20151012
  Transmission Date: 20160304
  Serious: Yes (Hospitalization, Other)
  Sender: FDA-Public Use
  Company Number: US-ASTELLAS-2015US023241

PATIENT
  Age: 72 Year
  Sex: Female

DRUGS (1)
  1. PROGRAF [Suspect]
     Active Substance: TACROLIMUS\TACROLIMUS ANHYDROUS
     Indication: LUNG TRANSPLANT
     Dosage: 4 MG (4 CAPSULES, EVERY MORNING AND EVENING)
     Route: 048
     Dates: start: 20130413

REACTIONS (14)
  - Vomiting [Recovering/Resolving]
  - Hyponatraemia [Unknown]
  - Azotaemia [Unknown]
  - Vomiting [Unknown]
  - Off label use [Unknown]
  - Drug level below therapeutic [Unknown]
  - Renal failure [Unknown]
  - Gastrooesophageal reflux disease [Unknown]
  - Haematemesis [Unknown]
  - Abdominal pain [Unknown]
  - Confusional state [Unknown]
  - Hypophagia [Unknown]
  - Fatigue [Unknown]
  - Nausea [Recovering/Resolving]

NARRATIVE: CASE EVENT DATE: 20130418
